FAERS Safety Report 10231603 (Version 1)
Quarter: 2014Q2

REPORT INFORMATION
  Report Type: Spontaneous
  Country: GR (occurrence: GR)
  Receive Date: 20140611
  Receipt Date: 20140611
  Transmission Date: 20141212
  Serious: Yes (Hospitalization, Other)
  Sender: FDA-Public Use
  Company Number: GR-TEVA-486186ISR

PATIENT
  Age: 76 Year
  Sex: Male
  Weight: 65 kg

DRUGS (1)
  1. OXALIPLATIN TEVA [Suspect]
     Route: 042
     Dates: start: 20140514, end: 20140514

REACTIONS (6)
  - Dizziness [Recovered/Resolved]
  - Discomfort [Recovered/Resolved]
  - Hyperhidrosis [Recovered/Resolved]
  - Blood pressure decreased [Recovered/Resolved]
  - Tremor [Recovered/Resolved]
  - Head titubation [Recovered/Resolved]
